FAERS Safety Report 9972631 (Version 1)
Quarter: 2014Q1

REPORT INFORMATION
  Report Type: Spontaneous
  Country: US (occurrence: US)
  Receive Date: 20140306
  Receipt Date: 20140306
  Transmission Date: 20141002
  Serious: No
  Sender: FDA-Public Use
  Company Number: US-ABBVIE-13P-163-1154263-00

PATIENT
  Sex: Female
  Weight: 84.9 kg

DRUGS (9)
  1. HUMIRA [Suspect]
     Indication: ANKYLOSING SPONDYLITIS
     Route: 058
     Dates: start: 2013, end: 201309
  2. BENICAR [Concomitant]
     Indication: HYPERTENSION
  3. SIMVASTATIN [Concomitant]
     Indication: BLOOD CHOLESTEROL INCREASED
  4. SEROQUEL [Concomitant]
     Indication: INSOMNIA
  5. CYMBALTA [Concomitant]
     Indication: DEPRESSION
  6. PREDNISONE [Concomitant]
     Indication: ANKYLOSING SPONDYLITIS
  7. POTASSIUM [Concomitant]
     Indication: VITAMIN SUPPLEMENTATION
  8. METOLAZONE [Concomitant]
     Indication: PRODUCT USED FOR UNKNOWN INDICATION
  9. METHOTREXATE [Concomitant]
     Indication: ANKYLOSING SPONDYLITIS

REACTIONS (1)
  - Rash [Recovering/Resolving]
